FAERS Safety Report 7940587-5 (Version None)
Quarter: 2011Q4

REPORT INFORMATION
  Report Type: 
  Country: None (occurrence: None)
  Receive Date: 20111108
  Receipt Date: 20110727
  Transmission Date: 20120403
  Serious: Yes (Death)
  Sender: FDA-Public Use
  Company Number: PHHY2011US67864

PATIENT
  Age: 55 Year
  Sex: Female

DRUGS (2)
  1. ZOMETA [Suspect]
     Dosage: 4 MG, INJECTION NOS
  2. ANTIHISTAMINES (NO INGREDIENTS/SUBSTANCES) [Concomitant]

REACTIONS (3)
  - METASTASES TO LUNG [None]
  - METASTASES TO CENTRAL NERVOUS SYSTEM [None]
  - METASTASES TO ADRENALS [None]
